FAERS Safety Report 6029705-6 (Version None)
Quarter: 2009Q1

REPORT INFORMATION
  Report Type: 
  Country: None (occurrence: None)
  Receive Date: 20090107
  Receipt Date: 20081223
  Transmission Date: 20090719
  Serious: Yes (Hospitalization)
  Sender: FDA-Public Use
  Company Number: US-BAYER-200830404GPV

PATIENT
  Age: 73 Year
  Sex: Female
  Weight: 68 kg

DRUGS (9)
  1. VEGF TRAP-EYE(VEGF TRAP) [Suspect]
     Indication: MACULAR DEGENERATION
     Route: 031
     Dates: start: 20080213
  2. NAPROXEN [Suspect]
     Indication: OSTEOARTHRITIS
     Dosage: TOTAL DAILY DOSE: 1000 MG
     Route: 048
     Dates: start: 20080101, end: 20081026
  3. OXYCODONE [Suspect]
     Indication: PAIN
     Dates: start: 20080101, end: 20081026
  4. CRESTOR [Concomitant]
     Indication: HYPERCHOLESTEROLAEMIA
     Dosage: TOTAL DAILY DOSE: 10 MG
     Route: 048
     Dates: start: 20030101
  5. PRESERVISION [Concomitant]
     Indication: MEDICAL DIET
     Dates: start: 20080125
  6. VICODIN [Concomitant]
     Indication: PAIN
     Dates: start: 20080227
  7. TRAMADOL HYDROCHLORIDE AND ACETAMINOPHEN [Concomitant]
     Indication: OSTEOARTHRITIS
     Dates: start: 20080620
  8. MULTI-VITAMIN [Concomitant]
     Indication: MEDICAL DIET
     Route: 048
     Dates: start: 20080125
  9. CALCIUM SUPPLEMENT [Concomitant]
     Indication: MEDICAL DIET

REACTIONS (1)
  - DUODENAL ULCER HAEMORRHAGE [None]
